FAERS Safety Report 4670201-6 (Version None)
Quarter: 2005Q2

REPORT INFORMATION
  Report Type: 
  Country: None (occurrence: None)
  Receive Date: 20050523
  Receipt Date: 20050516
  Transmission Date: 20051028
  Serious: Yes (Death, Hospitalization)
  Sender: FDA-Public Use
  Company Number: 163-20785-04050357

PATIENT
  Age: 58 Year
  Sex: Male

DRUGS (50)
  1. THALOMID [Suspect]
     Indication: MULTIPLE MYELOMA
     Dosage: 50 MG, QD, ORAL
     Route: 048
     Dates: start: 20031229, end: 20040406
  2. THALOMIDE (THALIDOMIDE) (50 MILLIGRAM CAPSULES) [Suspect]
     Indication: MULTIPLE MYELOMA
     Dosage: 100 MG, QD, ORAL
     Route: 048
     Dates: start: 20030824, end: 20030824
  3. THALOMIDE (THALIDOMIDE) (50 MILLIGRAM CAPSULES) [Suspect]
     Indication: MULTIPLE MYELOMA
     Dosage: 100 MG, QD, ORAL
     Route: 048
     Dates: start: 20031201, end: 20031228
  4. THALOMIDE (THALIDOMIDE) (50 MILLIGRAM, CAPSULES) [Suspect]
     Indication: MULTIPLE MYELOMA
     Dosage: 200MG, ORAL
     Route: 048
     Dates: start: 20010926, end: 20011117
  5. THALOMIDE (THALIDOMIDE) (50 MILLIGRAM, CAPSULES) [Suspect]
     Indication: MULTIPLE MYELOMA
     Dosage: 200MG, ORAL
     Route: 048
     Dates: start: 20011208, end: 20021229
  6. THALOMIDE (THALIDOMIDE) (50 MILLIGRAM, CAPSULES) [Suspect]
     Indication: MULTIPLE MYELOMA
     Dosage: 200MG, ORAL
     Route: 048
     Dates: start: 20030109, end: 20030304
  7. THALOMIDE (THALIDOMIDE) (50 MILLIGRAM, CAPSULES) [Suspect]
     Indication: MULTIPLE MYELOMA
     Dosage: 200MG, ORAL
     Route: 048
     Dates: start: 20030401, end: 20030427
  8. THALOMIDE (THALIDOMIDE) (50 MILLIGRAM, CAPSULES) [Suspect]
     Indication: MULTIPLE MYELOMA
     Dosage: 200MG, ORAL
     Route: 048
     Dates: start: 20030506, end: 20030603
  9. THALOMIDE (THALIDOMIDE) (50 MILLIGRAM, CAPSULES) [Suspect]
     Indication: MULTIPLE MYELOMA
     Dosage: 200MG, ORAL
     Route: 048
     Dates: start: 20030610, end: 20030707
  10. THALOMIDE (THALIDOMIDE) (50 MILLIGRAM, CAPSULES) [Suspect]
     Indication: MULTIPLE MYELOMA
     Dosage: 200MG, ORAL
     Route: 048
     Dates: start: 20030718, end: 20030718
  11. THALOMID [Suspect]
     Indication: MULTIPLE MYELOMA
     Dosage: 100MG, ORAL
     Route: 048
     Dates: start: 20010907, end: 20010925
  12. THALOMID [Suspect]
     Indication: MULTIPLE MYELOMA
     Dosage: 300MG, ORAL
     Route: 048
     Dates: start: 20010905, end: 20010905
  13. THALOMID [Suspect]
     Indication: MULTIPLE MYELOMA
     Dosage: 400MG, ORAL
     Route: 048
     Dates: start: 20010813, end: 20010904
  14. DEXAMETHASONE [Suspect]
     Indication: MULTIPLE MYELOMA
     Dosage: 20 MG, DAYS 1-4, 9-12, 17-20 EVERY 3 MONTHS, ORAL
     Route: 048
     Dates: start: 20031229, end: 20030419
  15. DEXAMETHASONE [Suspect]
     Indication: MULTIPLE MYELOMA
     Dosage: 20 MG, DAYS 1-4, 9-12, 17-20 EVERY 3 MONTHS, ORAL
     Route: 048
     Dates: start: 20010813
  16. DEXAMETHASONE [Suspect]
     Indication: MULTIPLE MYELOMA
     Dosage: 20 MG, DAYS 1-4, 9-12, 17-20 EVERY 3 MONTHS, ORAL
     Route: 048
     Dates: start: 20010926
  17. DEXAMETHASONE [Suspect]
     Indication: MULTIPLE MYELOMA
     Dosage: 20 MG, DAYS 1-4, 9-12, 17-20 EVERY 3 MONTHS, ORAL
     Route: 048
     Dates: start: 20011115
  18. DEXAMETHASONE [Suspect]
     Indication: MULTIPLE MYELOMA
     Dosage: 20 MG, DAYS 1-4, 9-12, 17-20 EVERY 3 MONTHS, ORAL
     Route: 048
     Dates: start: 20020924
  19. DEXAMETHASONE [Suspect]
     Indication: MULTIPLE MYELOMA
     Dosage: 20 MG, DAYS 1-4, 9-12, 17-20 EVERY 3 MONTHS, ORAL
     Route: 048
     Dates: start: 20030109
  20. DEXAMETHASONE [Suspect]
     Indication: MULTIPLE MYELOMA
     Dosage: 20 MG, DAYS 1-4, 9-12, 17-20 EVERY 3 MONTHS, ORAL
     Route: 048
     Dates: start: 20030612
  21. INTRON A [Suspect]
     Indication: MULTIPLE MYELOMA
     Dosage: 2 MU/M^2, 3X WEEKLY, SUBCUTANEOUS
     Route: 058
     Dates: start: 20040331, end: 20040430
  22. VINCRISTINE [Suspect]
     Indication: MULTIPLE MYELOMA
     Dates: start: 20010813
  23. CYCLOPHOSPHAMIDE [Suspect]
     Indication: MULTIPLE MYELOMA
     Dosage: INTRAVENOUS
     Route: 042
     Dates: start: 20010926
  24. CYCLOPHOSPHAMIDE [Suspect]
     Indication: MULTIPLE MYELOMA
     Dosage: INTRAVENOUS
     Route: 042
     Dates: start: 20011115
  25. CYCLOPHOSPHAMIDE [Suspect]
     Indication: MULTIPLE MYELOMA
     Dosage: INTRAVENOUS
     Route: 042
     Dates: start: 20020924
  26. CYCLOPHOSPHAMIDE [Suspect]
     Indication: MULTIPLE MYELOMA
     Dosage: INTRAVENOUS
     Route: 042
     Dates: start: 20030109
  27. CYCLOPHOSPHAMIDE [Suspect]
     Indication: MULTIPLE MYELOMA
     Dosage: INTRAVENOUS
     Route: 042
     Dates: start: 20030612
  28. ADRIAMYCIN PFS [Suspect]
     Indication: MULTIPLE MYELOMA
     Dosage: INTRAVENOUS
     Route: 042
     Dates: start: 20010813
  29. ADRIAMYCIN PFS [Suspect]
     Indication: MULTIPLE MYELOMA
     Dosage: INTRAVENOUS
     Route: 042
     Dates: start: 20011115
  30. ADRIAMYCIN PFS [Suspect]
     Indication: MULTIPLE MYELOMA
     Dosage: INTRAVENOUS
     Route: 042
     Dates: start: 20020924
  31. ADRIAMYCIN PFS [Suspect]
     Indication: MULTIPLE MYELOMA
     Dosage: INTRAVENOUS
     Route: 042
     Dates: start: 20030109
  32. ADRIAMYCIN PFS [Suspect]
     Indication: MULTIPLE MYELOMA
     Dosage: INTRAVENOUS
     Route: 042
     Dates: start: 20030612
  33. ETOPOSIDE [Suspect]
     Indication: MULTIPLE MYELOMA
     Dosage: INTRAVENOUS
     Route: 042
     Dates: start: 20010926
  34. ETOPOSIDE [Suspect]
     Indication: MULTIPLE MYELOMA
     Dosage: INTRAVENOUS
     Route: 042
     Dates: start: 20020924
  35. ETOPOSIDE [Suspect]
     Indication: MULTIPLE MYELOMA
     Dosage: INTRAVENOUS
     Route: 042
     Dates: start: 20030109
  36. ETOPOSIDE [Suspect]
     Indication: MULTIPLE MYELOMA
     Dosage: INTRAVENOUS
     Route: 042
     Dates: start: 20030612
  37. CISPLATIN [Suspect]
     Indication: MULTIPLE MYELOMA
     Dosage: INTRAVENOUS
     Route: 042
     Dates: start: 20010926
  38. CISPLATIN [Suspect]
     Indication: MULTIPLE MYELOMA
     Dosage: INTRAVENOUS
     Route: 042
     Dates: start: 20020924
  39. CISPLATIN [Suspect]
     Indication: MULTIPLE MYELOMA
     Dosage: INTRAVENOUS
     Route: 042
     Dates: start: 20030109
  40. CISPLATIN [Suspect]
     Indication: MULTIPLE MYELOMA
     Dosage: INTRAVENOUS
     Route: 042
     Dates: start: 20030612
  41. MELPHALAN (MELPHALAN) [Suspect]
     Indication: MULTIPLE MYELOMA
     Dosage: 140 MG, INTRAVENOUS
     Route: 042
     Dates: start: 20020131, end: 20020131
  42. MELPHALAN (MELPHALAN) [Suspect]
     Indication: MULTIPLE MYELOMA
     Dosage: 140 MG, INTRAVENOUS
     Route: 042
     Dates: start: 20020517, end: 20020517
  43. SYNTHROID [Concomitant]
  44. ACYCLOVIR [Concomitant]
  45. RANITIDINE [Concomitant]
  46. ZOLOFT [Concomitant]
  47. PHOSLO [Concomitant]
  48. DIGOXIN [Concomitant]
  49. TEQUIN [Concomitant]
  50. DIFLUCAN [Concomitant]

REACTIONS (14)
  - ASEPTIC NECROSIS BONE [None]
  - ASTHENIA [None]
  - BRAIN DEATH [None]
  - GASTROINTESTINAL INFECTION [None]
  - HAEMODIALYSIS [None]
  - HYPOAESTHESIA [None]
  - INTESTINAL PERFORATION [None]
  - NODULE [None]
  - PARAESTHESIA [None]
  - RENAL FAILURE [None]
  - SINUSITIS [None]
  - STEM CELL TRANSPLANT [None]
  - STENT OCCLUSION [None]
  - UPPER RESPIRATORY TRACT INFECTION [None]
